FAERS Safety Report 9340765 (Version 1)
Quarter: 2013Q2

REPORT INFORMATION
  Report Type: Spontaneous
  Country: BR (occurrence: BR)
  Receive Date: 20130610
  Receipt Date: 20130610
  Transmission Date: 20140414
  Serious: Yes (Death, Disabling)
  Sender: FDA-Public Use
  Company Number: BR-ASTRAZENECA-2013SE41575

PATIENT
  Age: 86 Year
  Sex: Male

DRUGS (1)
  1. ATACAND [Suspect]
     Indication: CEREBROVASCULAR ACCIDENT
     Route: 048
     Dates: start: 2006

REACTIONS (4)
  - Aphagia [Fatal]
  - Fatigue [Fatal]
  - Asthenia [Unknown]
  - Off label use [Not Recovered/Not Resolved]
